FAERS Safety Report 14377492 (Version 1)
Quarter: 2018Q1

REPORT INFORMATION
  Report Type: Spontaneous
  Country: PL (occurrence: PL)
  Receive Date: 20180111
  Receipt Date: 20180111
  Transmission Date: 20180509
  Serious: Yes (Life-Threatening)
  Sender: FDA-Public Use
  Company Number: PL-ALLERGAN-1801050US

PATIENT
  Age: 38 Year
  Sex: Female

DRUGS (1)
  1. CITALOPRAM HYDROBROMIDE - BP [Suspect]
     Active Substance: CITALOPRAM HYDROBROMIDE
     Indication: DEPRESSION
     Dosage: UNK
     Route: 048
     Dates: start: 20170608

REACTIONS (4)
  - Lactic acidosis [Recovered/Resolved]
  - Hypokalaemia [Recovered/Resolved]
  - Respiratory failure [Recovered/Resolved]
  - Seizure [Recovered/Resolved]
